FAERS Safety Report 21068416 (Version 1)
Quarter: 2022Q3

REPORT INFORMATION
  Report Type: Spontaneous
  Country: RO (occurrence: RO)
  Receive Date: 20220712
  Receipt Date: 20220712
  Transmission Date: 20221027
  Serious: Yes (Hospitalization, Other)
  Sender: FDA-Public Use
  Company Number: RO-MEDO2008-L202206041

PATIENT
  Age: 1 Month
  Sex: Male

DRUGS (3)
  1. AMPICILLIN [Suspect]
     Active Substance: AMPICILLIN
     Indication: Pneumonia
     Dosage: UNK
     Route: 065
  2. AMPICILLIN [Suspect]
     Active Substance: AMPICILLIN
     Indication: Pyrexia
  3. AMPICILLIN [Suspect]
     Active Substance: AMPICILLIN
     Indication: Cough

REACTIONS (2)
  - Condition aggravated [Recovered/Resolved]
  - Therapeutic product effect incomplete [Unknown]
